FAERS Safety Report 21009869 (Version 1)
Quarter: 2022Q2

REPORT INFORMATION
  Report Type: Report from Study
  Country: US (occurrence: US)
  Receive Date: 20220627
  Receipt Date: 20220627
  Transmission Date: 20220721
  Serious: Yes (Hospitalization)
  Sender: FDA-Public Use
  Company Number: US-PFIZER INC-PV202200008858

PATIENT
  Age: 97 Year
  Sex: Female

DRUGS (1)
  1. IBRANCE [Suspect]
     Active Substance: PALBOCICLIB
     Indication: Breast cancer female
     Dosage: ONCE DAILY (WITH FOOD) FOR 21 DAYS ON, 7 DAYS OFF
     Route: 048
     Dates: end: 202206

REACTIONS (1)
  - Blood iron decreased [Unknown]

NARRATIVE: CASE EVENT DATE: 20220601
